FAERS Safety Report 11184300 (Version 4)
Quarter: 2015Q3

REPORT INFORMATION
  Report Type: Spontaneous
  Country: JP (occurrence: JP)
  Receive Date: 20150612
  Receipt Date: 20150820
  Transmission Date: 20151125
  Serious: Yes (Hospitalization)
  Sender: FDA-Public Use
  Company Number: JP-B.I. PHARMACEUTICALS,INC./RIDGEFIELD-2015-BI-31420NB

PATIENT
  Age: 81 Year
  Sex: Female
  Weight: 67 kg

DRUGS (14)
  1. SENNOSIDE [Concomitant]
     Active Substance: SENNOSIDES
     Indication: DYSLIPIDAEMIA
     Dosage: 12 MG
     Route: 048
  2. TRAZENTA [Suspect]
     Active Substance: LINAGLIPTIN
     Indication: HYPERGLYCAEMIA
     Dosage: 5 MG
     Route: 048
     Dates: start: 20150514, end: 20150608
  3. FUROSEMIDE. [Concomitant]
     Active Substance: FUROSEMIDE
     Indication: DYSLIPIDAEMIA
     Dosage: 80 MG
     Route: 048
  4. TANADOPA [Concomitant]
     Indication: CARDIAC FAILURE CHRONIC
     Dosage: 4 G
     Route: 065
  5. NEXIUM [Concomitant]
     Active Substance: ESOMEPRAZOLE MAGNESIUM
     Indication: DYSLIPIDAEMIA
     Dosage: 10 MG
     Route: 048
  6. FEBURIC [Concomitant]
     Active Substance: FEBUXOSTAT
     Indication: DYSLIPIDAEMIA
     Dosage: 10 MG
     Route: 065
  7. NIKORANMART [Concomitant]
     Active Substance: NICORANDIL
     Indication: PRODUCT USED FOR UNKNOWN INDICATION
     Dosage: 10 MG
     Route: 065
  8. PITAVASTATIN CALCIUM [Concomitant]
     Active Substance: PITAVASTATIN CALCIUM
     Indication: DYSLIPIDAEMIA
     Dosage: 1 MG
     Route: 048
  9. SIGMART [Concomitant]
     Active Substance: NICORANDIL
     Indication: DYSLIPIDAEMIA
     Dosage: 10 MG
     Route: 065
  10. SPIRONOLACTONE. [Concomitant]
     Active Substance: SPIRONOLACTONE
     Indication: DYSLIPIDAEMIA
     Dosage: 12.5 MG
     Route: 065
  11. LUPRAC [Concomitant]
     Active Substance: TORSEMIDE
     Indication: CARDIAC FAILURE CHRONIC
     Dosage: 8 MG
     Route: 065
     Dates: start: 20150423
  12. DIAMOX SEQUELS [Concomitant]
     Active Substance: ACETAZOLAMIDE
     Indication: RESPIRATORY FAILURE
     Dosage: 500 MG
     Route: 065
     Dates: start: 20150409
  13. XARELTO [Concomitant]
     Active Substance: RIVAROXABAN
     Indication: PULMONARY EMBOLISM
     Dosage: 10 MG
     Route: 065
     Dates: start: 20150326
  14. GLUFAST [Concomitant]
     Active Substance: MITIGLINIDE
     Indication: DYSLIPIDAEMIA
     Dosage: 20 MG
     Route: 065

REACTIONS (2)
  - Fall [Unknown]
  - Rash pruritic [Unknown]

NARRATIVE: CASE EVENT DATE: 20150603
